FAERS Safety Report 10478900 (Version 1)
Quarter: 2014Q3

REPORT INFORMATION
  Report Type: Spontaneous
  Country: GB (occurrence: GB)
  Receive Date: 20140926
  Receipt Date: 20140926
  Transmission Date: 20150326
  Serious: Yes (Other)
  Sender: FDA-Public Use
  Company Number: GB-PERRIGO-14GB009358

PATIENT
  Age: 52 Year
  Sex: Female

DRUGS (1)
  1. CETIRIZINE HYDROCHLORIDE 16208/0066 10 MG [Suspect]
     Active Substance: CETIRIZINE HYDROCHLORIDE
     Indication: PROPHYLAXIS
     Dosage: 30 MINUTES BEFORE EACH EPISODE
     Route: 048

REACTIONS (11)
  - Angioedema [Recovered/Resolved]
  - Hyperhidrosis [Recovered/Resolved]
  - Urticaria [Recovered/Resolved]
  - Vomiting [Recovered/Resolved]
  - Tachycardia [Recovered/Resolved]
  - Wheezing [Recovered/Resolved]
  - Anaphylactic reaction [Recovered/Resolved]
  - Abdominal pain [Recovered/Resolved]
  - Dyspnoea [Recovered/Resolved]
  - Pruritus generalised [Recovered/Resolved]
  - Erythema [Recovered/Resolved]
